APPROVED DRUG PRODUCT: MIDOSTAURIN
Active Ingredient: MIDOSTAURIN
Strength: 25MG
Dosage Form/Route: CAPSULE;ORAL
Application: A215921 | Product #001 | TE Code: AB
Applicant: DR REDDYS LABORATORIES LTD
Approved: Jun 28, 2024 | RLD: No | RS: No | Type: RX